FAERS Safety Report 4867674-2 (Version None)
Quarter: 2005Q4

REPORT INFORMATION
  Report Type: 
  Country: None (occurrence: None)
  Receive Date: 20051222
  Receipt Date: 20051222
  Transmission Date: 20060501
  Serious: Yes (Life-Threatening, Other)
  Sender: FDA-Public Use
  Company Number: None

PATIENT
  Age: 24 Year
  Sex: Female
  Weight: 52.1637 kg

DRUGS (1)
  1. LARIAM [Suspect]
     Indication: PROPHYLAXIS
     Dosage: 1 PILL  EVERY WEEK  PO
     Route: 048
     Dates: start: 19970913, end: 19980913

REACTIONS (5)
  - FEELING ABNORMAL [None]
  - MENTAL DISORDER [None]
  - PARANOIA [None]
  - SELF INJURIOUS BEHAVIOUR [None]
  - STRESS [None]
